FAERS Safety Report 16841058 (Version 5)
Quarter: 2020Q1

REPORT INFORMATION
  Report Type: Spontaneous
  Country: US (occurrence: US)
  Receive Date: 20190923
  Receipt Date: 20200204
  Transmission Date: 20200409
  Serious: Yes (Hospitalization)
  Sender: FDA-Public Use
  Company Number: US-SA-2019SA260698

PATIENT
  Age: 43 Year
  Sex: Female

DRUGS (2)
  1. FABRAZYME [Suspect]
     Active Substance: AGALSIDASE BETA
     Indication: FABRY^S DISEASE
     Dosage: 70 MG, EVERY 2 WEEKS
     Route: 041
     Dates: start: 20190726
  2. FABRAZYME [Suspect]
     Active Substance: AGALSIDASE BETA
     Dosage: 15MG EVERY 2 WEEKS
     Route: 058

REACTIONS (3)
  - Pregnancy [Unknown]
  - Malaise [Unknown]
  - Product use issue [Unknown]
